FAERS Safety Report 11430293 (Version 1)
Quarter: 2015Q3

REPORT INFORMATION
  Report Type: Spontaneous
  Country: US (occurrence: US)
  Receive Date: 20150828
  Receipt Date: 20150828
  Transmission Date: 20151125
  Serious: No
  Sender: FDA-Public Use
  Company Number: US-ROCHE-1218226

PATIENT
  Sex: Female
  Weight: 79 kg

DRUGS (2)
  1. RIBAVIRIN. [Concomitant]
     Active Substance: RIBAVIRIN
     Indication: HEPATITIS C
     Route: 048
     Dates: start: 20130412
  2. PEGASYS [Suspect]
     Active Substance: PEGINTERFERON ALFA-2A
     Indication: HEPATITIS C
     Dosage: 180MG/0.5ML
     Route: 058
     Dates: start: 20130412

REACTIONS (5)
  - Contusion [Unknown]
  - Exposure via direct contact [Unknown]
  - Drug administration error [Unknown]
  - Drug dose omission [Unknown]
  - Injection site bruising [Recovered/Resolved]
